FAERS Safety Report 10676920 (Version 2)
Quarter: 2015Q3

REPORT INFORMATION
  Report Type: Spontaneous
  Country: US (occurrence: US)
  Receive Date: 20141226
  Receipt Date: 20150729
  Transmission Date: 20151125
  Serious: No
  Sender: FDA-Public Use
  Company Number: US-EISAI MEDICAL RESEARCH-EC-2014-002609

PATIENT
  Age: 49 Year
  Sex: Female

DRUGS (4)
  1. BELVIQ [Suspect]
     Active Substance: LORCASERIN HYDROCHLORIDE
     Indication: FOOD CRAVING
     Route: 048
     Dates: start: 20141113, end: 2014
  2. BELVIQ [Suspect]
     Active Substance: LORCASERIN HYDROCHLORIDE
     Route: 048
     Dates: start: 201502, end: 201505
  3. BELVIQ [Suspect]
     Active Substance: LORCASERIN HYDROCHLORIDE
     Route: 048
     Dates: start: 201505, end: 201505
  4. BELVIQ [Suspect]
     Active Substance: LORCASERIN HYDROCHLORIDE
     Indication: BINGE EATING
     Route: 048
     Dates: start: 2014, end: 201412

REACTIONS (7)
  - Vision blurred [Recovering/Resolving]
  - Drug withdrawal syndrome [Recovered/Resolved]
  - Drug effect decreased [Unknown]
  - Memory impairment [Recovering/Resolving]
  - Headache [Recovered/Resolved]
  - Disturbance in attention [Recovering/Resolving]
  - Chest pain [Recovered/Resolved]

NARRATIVE: CASE EVENT DATE: 20141113
